FAERS Safety Report 11427710 (Version 1)
Quarter: 2015Q3

REPORT INFORMATION
  Report Type: Spontaneous
  Country: JP (occurrence: JP)
  Receive Date: 20150828
  Receipt Date: 20150828
  Transmission Date: 20151125
  Serious: Yes (Death)
  Sender: FDA-Public Use
  Company Number: JP-ROCHE-1626912

PATIENT
  Age: 88 Year
  Sex: Female

DRUGS (1)
  1. MIRCERA [Suspect]
     Active Substance: METHOXY POLYETHYLENE GLYCOL-EPOETIN BETA
     Indication: NEPHROGENIC ANAEMIA
     Dosage: MOST RECENT DOSE WAS GIVEN ON 21/JUN/2013
     Route: 058
     Dates: start: 20130308

REACTIONS (1)
  - Femur fracture [Fatal]

NARRATIVE: CASE EVENT DATE: 201307
